FAERS Safety Report 9132024 (Version 1)
Quarter: 2013Q1

REPORT INFORMATION
  Report Type: Report from Study
  Country: US (occurrence: US)
  Receive Date: 20130301
  Receipt Date: 20130301
  Transmission Date: 20140127
  Serious: No
  Sender: FDA-Public Use
  Company Number: US-MYLANLABS-2012S1000632

PATIENT
  Age: 38 Year
  Sex: Male
  Weight: 74.84 kg

DRUGS (4)
  1. AMNESTEEM CAPSULES [Suspect]
     Indication: ACNE CYSTIC
     Dates: start: 20110908
  2. DOXAZOSIN [Concomitant]
  3. BUSPIRONE [Concomitant]
  4. BACLOFEN [Concomitant]

REACTIONS (1)
  - Back pain [Recovered/Resolved]
